FAERS Safety Report 8537095-X (Version None)
Quarter: 2012Q3

REPORT INFORMATION
  Report Type: 
  Country: None (occurrence: None)
  Receive Date: 20120725
  Receipt Date: 20120719
  Transmission Date: 20120928
  Serious: Yes (Hospitalization)
  Sender: FDA-Public Use
  Company Number: AT-PFIZER INC-2012175915

PATIENT
  Age: 39 Year
  Sex: Female
  Weight: 74 kg

DRUGS (6)
  1. CYCLACUR [Concomitant]
     Indication: FOLLICLE-STIMULATING HORMONE DEFICIENCY
  2. COMBITHYREX [Concomitant]
     Indication: BLOOD THYROID STIMULATING HORMONE DECREASED
     Dosage: UNK
     Dates: start: 20010401
  3. LEVOTHYROXINE SODIUM [Concomitant]
     Indication: HYPOTHYROIDISM
     Dosage: UNK
     Dates: start: 20010401
  4. SOMATROPIN [Suspect]
     Dosage: 0.4 MG/ 7
     Route: 058
     Dates: start: 20010710
  5. CYCLACUR [Concomitant]
     Indication: LUTEINISING HORMONE DEFICIENCY
     Dosage: UNK
     Dates: start: 20010401
  6. SEROXAT ^CIBA-GEIGY^ [Concomitant]
     Indication: DEPRESSION
     Dosage: UNK
     Dates: start: 20050115

REACTIONS (2)
  - RADIUS FRACTURE [None]
  - ULNA FRACTURE [None]
